FAERS Safety Report 8016634-1 (Version None)
Quarter: 2011Q4

REPORT INFORMATION
  Report Type: 
  Country: None (occurrence: None)
  Receive Date: 20111231
  Receipt Date: 20111220
  Transmission Date: 20120403
  Serious: Yes (Hospitalization)
  Sender: FDA-Public Use
  Company Number: PHHY2011JP111352

PATIENT
  Age: 32 Year
  Sex: Female

DRUGS (4)
  1. HYDRALAZINE HYDROCHLORIDE [Suspect]
     Dosage: 6 MG, UNK
     Route: 042
  2. CYCLOSPORINE [Suspect]
     Indication: APLASTIC ANAEMIA
     Dosage: 60 MG, UNK
     Route: 048
  3. HYDRALAZINE HYDROCHLORIDE [Suspect]
  4. PREDNISOLONE [Concomitant]
     Indication: APLASTIC ANAEMIA
     Route: 048

REACTIONS (2)
  - GESTATIONAL HYPERTENSION [None]
  - MATERNAL EXPOSURE DURING PREGNANCY [None]
